FAERS Safety Report 5244325-9 (Version None)
Quarter: 2007Q1

REPORT INFORMATION
  Report Type: 
  Country: None (occurrence: None)
  Receive Date: 20070222
  Receipt Date: 20070212
  Transmission Date: 20070707
  Serious: Yes (Other)
  Sender: FDA-Public Use
  Company Number: HQWYE970109JUL04

PATIENT
  Sex: Female
  Weight: 66.51 kg

DRUGS (1)
  1. PREMPRO [Suspect]
     Dosage: UNKNOWN
     Route: 048
     Dates: start: 19951130, end: 20010619

REACTIONS (1)
  - BREAST CANCER METASTATIC [None]
